FAERS Safety Report 4468730-3 (Version None)
Quarter: 2004Q4

REPORT INFORMATION
  Report Type: 
  Country: None (occurrence: None)
  Receive Date: 20041007
  Receipt Date: 19991217
  Transmission Date: 20050328
  Serious: Yes (Life-Threatening, Hospitalization)
  Sender: FDA-Public Use
  Company Number: US-MERCK-99121539

PATIENT
  Age: 79 Year
  Sex: Male

DRUGS (1)
  1. VIOXX [Suspect]
     Indication: ARTHRITIS
     Route: 048
     Dates: start: 19990101, end: 20040930

REACTIONS (6)
  - HYPERTENSION [None]
  - MYOCARDIAL INFARCTION [None]
  - PHOTOSENSITIVITY REACTION [None]
  - RASH [None]
  - SWELLING [None]
  - TRIPLE VESSEL BYPASS GRAFT [None]
